FAERS Safety Report 9286610 (Version 1)
Quarter: 2013Q2

REPORT INFORMATION
  Report Type: Spontaneous
  Country: US (occurrence: US)
  Receive Date: 20130513
  Receipt Date: 20130513
  Transmission Date: 20140414
  Serious: Yes (Death, Hospitalization)
  Sender: FDA-Public Use
  Company Number: PHHY2013US046487

PATIENT
  Sex: Female

DRUGS (3)
  1. EPIRUBICIN [Suspect]
     Indication: BREAST CANCER STAGE III
  2. TAXOTERE [Suspect]
     Indication: BREAST CANCER STAGE III
  3. CYCLOPHOSPHAMIDE [Suspect]
     Indication: BREAST CANCER STAGE III

REACTIONS (13)
  - Acute hepatic failure [Fatal]
  - Acute hepatitis B [Fatal]
  - Nausea [Fatal]
  - Asthenia [Fatal]
  - Fatigue [Fatal]
  - Jaundice [Fatal]
  - Coagulopathy [Fatal]
  - Hepatorenal syndrome [Fatal]
  - Retroperitoneal haemorrhage [Fatal]
  - Coma hepatic [Fatal]
  - Mental status changes [Unknown]
  - Dehydration [Unknown]
  - Hepatitis B [Unknown]
